FAERS Safety Report 9092343 (Version 1)
Quarter: 2013Q1

REPORT INFORMATION
  Report Type: Report from Study
  Country: US (occurrence: US)
  Receive Date: 20130201
  Receipt Date: 20130201
  Transmission Date: 20140127
  Serious: No
  Sender: FDA-Public Use
  Company Number: US-ABBOTT-12P-163-1022929-00

PATIENT
  Age: 30 Year
  Sex: Female

DRUGS (6)
  1. HUMIRA [Suspect]
     Indication: PSORIASIS
     Dosage: LOADING DOSE
     Dates: start: 20121127
  2. CREAMS [Concomitant]
     Indication: PSORIASIS
  3. ALEVE [Concomitant]
     Indication: PAIN
     Dosage: ALEVE OR TYLENOL FOR OCCASIONAL PAIN OR HEADACHE
  4. ALEVE [Concomitant]
     Indication: HEADACHE
  5. TYLENOL [Concomitant]
     Indication: PAIN
     Dosage: ALEVE OR TYLENOL FOR OCCASIONAL PAIN OR HEADACHE
  6. TYLENOL [Concomitant]
     Indication: HEADACHE

REACTIONS (2)
  - Abdominal pain [Not Recovered/Not Resolved]
  - Pyrexia [Not Recovered/Not Resolved]
